FAERS Safety Report 24021218 (Version 2)
Quarter: 2024Q3

REPORT INFORMATION
  Report Type: Spontaneous
  Country: DE (occurrence: DE)
  Receive Date: 20240627
  Receipt Date: 20240701
  Transmission Date: 20241017
  Serious: Yes (Hospitalization)
  Sender: MYLAN
  Company Number: DE-TORRENT-00026602

PATIENT
  Age: 53 Year
  Sex: Male

DRUGS (10)
  1. ITRACONAZOLE [Suspect]
     Active Substance: ITRACONAZOLE
     Indication: Dermatitis
     Dosage: 100 MILLIGRAM, QD, ONCE DAILY,(FOR 9 DAYS)
     Route: 065
  2. ITRACONAZOLE [Suspect]
     Active Substance: ITRACONAZOLE
     Indication: Candida infection
  3. ITRACONAZOLE [Suspect]
     Active Substance: ITRACONAZOLE
     Indication: Superinfection fungal
  4. NYSTATIN [Concomitant]
     Active Substance: NYSTATIN
     Indication: Superinfection fungal
     Dosage: UNK
     Route: 061
  5. NYSTATIN [Concomitant]
     Active Substance: NYSTATIN
     Indication: Candida infection
  6. NYSTATIN [Concomitant]
     Active Substance: NYSTATIN
     Indication: Antifungal treatment
  7. ZINC OXIDE [Concomitant]
     Active Substance: ZINC OXIDE
     Indication: Superinfection fungal
     Dosage: UNK
     Route: 061
  8. ZINC OXIDE [Concomitant]
     Active Substance: ZINC OXIDE
     Indication: Candida infection
  9. ZINC OXIDE [Concomitant]
     Active Substance: ZINC OXIDE
     Indication: Anal rash
  10. ZINC OXIDE [Concomitant]
     Active Substance: ZINC OXIDE
     Indication: Dermatitis

REACTIONS (2)
  - Symmetrical drug-related intertriginous and flexural exanthema [Recovered/Resolved]
  - Drug ineffective [Unknown]
